FAERS Safety Report 13495236 (Version 1)
Quarter: 2017Q2

REPORT INFORMATION
  Report Type: Spontaneous
  Country: US (occurrence: US)
  Receive Date: 20170427
  Receipt Date: 20170427
  Transmission Date: 20170830
  Serious: Yes (Other)
  Sender: FDA-Public Use
  Company Number: None

PATIENT
  Age: 64 Year
  Sex: Female
  Weight: 56.25 kg

DRUGS (7)
  1. OMEGA THREE VITS [Concomitant]
  2. XELODA [Suspect]
     Active Substance: CAPECITABINE
     Indication: ANAL CANCER
     Route: 048
     Dates: start: 20170329, end: 20170427
  3. MITOMYCIN C [Suspect]
     Active Substance: MITOMYCIN
     Indication: ANAL CANCER
     Dosage: OTHER FREQUENCY:TWO TOTAL DOSES;?
     Route: 040
     Dates: start: 20170329, end: 20170427
  4. WOBENZYM /02140101/ [Concomitant]
     Active Substance: .ALPHA.-AMYLASE (ASPERGILLUS ORYZAE)\BROMELAINS\CHYMOTRYPSIN\PANCRELIPASE\ PANCRELIPASE LIPASE\PAPAIN\RUTIN\TRYPSIN
  5. ATIVAN [Concomitant]
     Active Substance: LORAZEPAM
  6. ZANTAC [Concomitant]
     Active Substance: RANITIDINE HYDROCHLORIDE
  7. COMPAZINE [Concomitant]
     Active Substance: PROCHLORPERAZINE MALEATE

REACTIONS (2)
  - Electrocardiogram ST segment elevation [None]
  - Arteriospasm coronary [None]

NARRATIVE: CASE EVENT DATE: 20170420
